FAERS Safety Report 8609685-7 (Version None)
Quarter: 2012Q3

REPORT INFORMATION
  Report Type: 
  Country: None (occurrence: None)
  Receive Date: 20120821
  Receipt Date: 20120810
  Transmission Date: 20120928
  Serious: No
  Sender: FDA-Public Use
  Company Number: US-ASTRAZENECA-2012SE53176

PATIENT
  Age: 54 Year
  Sex: Female

DRUGS (2)
  1. NEXIUM [Suspect]
     Route: 048
  2. NEXIUM [Suspect]
     Dosage: TAKING NEXIUM EVERY TWO DAYS INSTEAD OF EVERY DAY
     Route: 048

REACTIONS (10)
  - BONE PAIN [None]
  - CONSTIPATION [None]
  - FEMORAL HERNIA [None]
  - DIZZINESS [None]
  - ABDOMINAL PAIN UPPER [None]
  - MALAISE [None]
  - DIVERTICULITIS [None]
  - GASTROOESOPHAGEAL REFLUX DISEASE [None]
  - INTENTIONAL DRUG MISUSE [None]
  - DRUG DOSE OMISSION [None]
